FAERS Safety Report 24131646 (Version 1)
Quarter: 2024Q3

REPORT INFORMATION
  Report Type: Spontaneous
  Country: US (occurrence: None)
  Receive Date: 20240723
  Receipt Date: 20240723
  Transmission Date: 20241017
  Serious: Yes (Hospitalization)
  Sender: Public
  Company Number: None

PATIENT
  Age: 34 Year
  Sex: Female
  Weight: 57.6 kg

DRUGS (2)
  1. VYVGART HYTRULO [Suspect]
     Active Substance: EFGARTIGIMOD ALFA\HYALURONIDASE-QVFC
     Indication: Myasthenia gravis
     Dosage: 5.6 ML WEEKLY SUBCUTANEOUS?
     Route: 058
     Dates: start: 20240722, end: 20240722
  2. VYVGART HYTRULO [Concomitant]
     Active Substance: EFGARTIGIMOD ALFA\HYALURONIDASE-QVFC
     Dates: start: 20240722, end: 20240722

REACTIONS (5)
  - Infusion related reaction [None]
  - Nausea [None]
  - Hyperhidrosis [None]
  - Heart rate decreased [None]
  - Therapy interrupted [None]

NARRATIVE: CASE EVENT DATE: 20240722
